FAERS Safety Report 5662818-7 (Version None)
Quarter: 2008Q1

REPORT INFORMATION
  Report Type: 
  Country: None (occurrence: None)
  Receive Date: 20080313
  Receipt Date: 20080229
  Transmission Date: 20080703
  Serious: Yes (Hospitalization)
  Sender: FDA-Public Use
  Company Number: DE-AMGEN-US204527

PATIENT
  Sex: Male
  Weight: 88 kg

DRUGS (3)
  1. ENBREL [Suspect]
     Indication: ANKYLOSING SPONDYLITIS
     Route: 058
     Dates: start: 20061005, end: 20061023
  2. CLOBETASOL PROPIONATE [Concomitant]
     Route: 065
  3. PLACEBO [Concomitant]
     Route: 065
     Dates: start: 20061005

REACTIONS (1)
  - MIGRAINE [None]
